FAERS Safety Report 14430767 (Version 5)
Quarter: 2018Q2

REPORT INFORMATION
  Report Type: Spontaneous
  Country: FR (occurrence: FR)
  Receive Date: 20180124
  Receipt Date: 20180613
  Transmission Date: 20180711
  Serious: Yes (Other)
  Sender: FDA-Public Use
  Company Number: FR-MERCK KGAA-2040675

PATIENT
  Age: 53 Year
  Sex: Male
  Weight: 120 kg

DRUGS (29)
  1. COVERSYL [Concomitant]
     Active Substance: PERINDOPRIL
  2. TAHOR [Concomitant]
     Active Substance: ATORVASTATIN CALCIUM
  3. FUROSEMIDE. [Concomitant]
     Active Substance: FUROSEMIDE
  4. KARDEGIC [Concomitant]
     Active Substance: ASPIRIN DL-LYSINE
  5. PROCORALAN [Concomitant]
     Active Substance: IVABRADINE
     Dates: start: 2012
  6. METFORMIN [Concomitant]
     Active Substance: METFORMIN HYDROCHLORIDE
  7. FUROSEMIDE. [Concomitant]
     Active Substance: FUROSEMIDE
  8. DUOPLAVIN(NEFAZAN COMPUESTO) [Concomitant]
  9. INEXIUM [Concomitant]
     Active Substance: ESOMEPRAZOLE
  10. CARDENSIEL [Concomitant]
     Active Substance: BISOPROLOL FUMARATE
  11. LEVOTHYROX 125 NF [Suspect]
     Active Substance: LEVOTHYROXINE SODIUM
     Dates: start: 2017
  12. INSPRA [Concomitant]
     Active Substance: EPLERENONE
  13. PROCORALAN [Concomitant]
     Active Substance: IVABRADINE
  14. BURINEX [Concomitant]
     Active Substance: BUMETANIDE
  15. KENZEN [Concomitant]
     Active Substance: CANDESARTAN
  16. PREVISCAN (PENTOXIFYLLINE) [Concomitant]
     Active Substance: PENTOXIFYLLINE
  17. CEFIXIME. [Concomitant]
     Active Substance: CEFIXIME
     Dates: start: 20170818
  18. SPASFON (PHLOROGLUCINOL, TRIMETHYLPHLOROGLUCINOL) [Concomitant]
     Active Substance: PHLOROGLUCINOL\1,3,5-TRIMETHOXYBENZENE
     Dates: start: 20170818
  19. SMECTA [Concomitant]
     Active Substance: MONTMORILLONITE
     Dates: start: 20170818
  20. TAHOR [Concomitant]
     Active Substance: ATORVASTATIN CALCIUM
     Dates: start: 20170818
  21. PROCORALAN [Concomitant]
     Active Substance: IVABRADINE
  22. KARDEGIC [Concomitant]
     Active Substance: ASPIRIN DL-LYSINE
  23. NOVOTHYROX [Suspect]
     Active Substance: LEVOTHYROXINE SODIUM
     Indication: HYPOTHYROIDISM
     Dates: start: 2017
  24. LASILIX [Concomitant]
     Active Substance: FUROSEMIDE
  25. EUCREAS [Concomitant]
     Active Substance: METFORMIN HYDROCHLORIDE\VILDAGLIPTIN
  26. CARDENSIEL [Concomitant]
     Active Substance: BISOPROLOL FUMARATE
  27. COVERSYL [Concomitant]
     Active Substance: PERINDOPRIL
  28. LEXOMIL [Concomitant]
     Active Substance: BROMAZEPAM
  29. EUCREAS [Concomitant]
     Active Substance: METFORMIN HYDROCHLORIDE\VILDAGLIPTIN

REACTIONS (54)
  - Hepatomegaly [None]
  - Decreased appetite [Recovering/Resolving]
  - Apathy [None]
  - Dyspepsia [None]
  - Gastrointestinal motility disorder [None]
  - Large intestine polyp [None]
  - High density lipoprotein decreased [Recovered/Resolved]
  - Gastrointestinal disorder [Recovering/Resolving]
  - Tremor [Recovering/Resolving]
  - Blood pressure decreased [None]
  - Bilirubin conjugated increased [Not Recovered/Not Resolved]
  - Cholestasis [Not Recovered/Not Resolved]
  - Tachycardia [None]
  - Mood swings [None]
  - Social avoidant behaviour [None]
  - Gastritis [None]
  - Blood thyroid stimulating hormone increased [Recovered/Resolved]
  - Blood bilirubin increased [Not Recovered/Not Resolved]
  - Nausea [Not Recovered/Not Resolved]
  - Pancreatic failure [None]
  - Dysbacteriosis [None]
  - Peripheral swelling [None]
  - Disturbance in attention [None]
  - Pruritus [Recovering/Resolving]
  - Vomiting [Recovering/Resolving]
  - Hot flush [None]
  - Joint swelling [None]
  - Poor quality sleep [Not Recovered/Not Resolved]
  - Aphasia [None]
  - Arrhythmia supraventricular [None]
  - Hepatic steatosis [None]
  - Steatorrhoea [None]
  - International normalised ratio increased [Recovered/Resolved]
  - Glycosylated haemoglobin increased [Not Recovered/Not Resolved]
  - Rash [Recovering/Resolving]
  - Gastric disorder [None]
  - Weight decreased [Recovering/Resolving]
  - Malaise [None]
  - Asthenia [None]
  - Hypersomnia [None]
  - Thyroxine increased [Not Recovered/Not Resolved]
  - Insomnia [None]
  - Diarrhoea [Recovering/Resolving]
  - Fatigue [Not Recovered/Not Resolved]
  - Blood glucose increased [Not Recovered/Not Resolved]
  - Red blood cell sedimentation rate increased [Not Recovered/Not Resolved]
  - Erosive duodenitis [Not Recovered/Not Resolved]
  - Lymphadenopathy [None]
  - Gamma-glutamyltransferase increased [None]
  - Eczema [None]
  - Liver function test abnormal [None]
  - Blood triglycerides increased [Not Recovered/Not Resolved]
  - C-reactive protein increased [None]
  - Palpitations [None]

NARRATIVE: CASE EVENT DATE: 2017
